FAERS Safety Report 15775936 (Version 2)
Quarter: 2019Q1

REPORT INFORMATION
  Report Type: Spontaneous
  Country: US (occurrence: US)
  Receive Date: 20181231
  Receipt Date: 20190308
  Transmission Date: 20190417
  Serious: Yes (Hospitalization)
  Sender: FDA-Public Use
  Company Number: US-JNJFOC-20181225911

PATIENT
  Age: 46 Year
  Sex: Female

DRUGS (4)
  1. MOTRIN [Suspect]
     Active Substance: IBUPROFEN
     Route: 048
  2. XARELTO [Suspect]
     Active Substance: RIVAROXABAN
     Indication: THROMBOSIS PROPHYLAXIS
     Dosage: 15 MG; 20 MG
     Route: 048
     Dates: start: 20140926, end: 20150122
  3. XARELTO [Suspect]
     Active Substance: RIVAROXABAN
     Indication: THROMBOSIS PROPHYLAXIS
     Dosage: 15 MG; 20 MG
     Route: 048
     Dates: start: 20140926, end: 20150122
  4. MOTRIN [Suspect]
     Active Substance: IBUPROFEN
     Indication: PAIN
     Route: 048

REACTIONS (1)
  - Uterine haemorrhage [Unknown]

NARRATIVE: CASE EVENT DATE: 20141205
